FAERS Safety Report 4780033-6 (Version None)
Quarter: 2005Q3

REPORT INFORMATION
  Report Type: 
  Country: None (occurrence: None)
  Receive Date: 20050914
  Receipt Date: 20050401
  Transmission Date: 20060218
  Serious: Yes (Other)
  Sender: FDA-Public Use
  Company Number: 163-20785-05040229

PATIENT
  Sex: Male

DRUGS (2)
  1. THALIDOMIDE OR PLACEBO (THALIDOMIDE) (CAPSULES) [Suspect]
     Indication: PROSTATIC INTRAEPITHELIAL NEOPLASIA
     Dosage: 200 MG OR PLACEBO TILL PSA PROGRESSION, DAILY, ORAL
     Route: 048
     Dates: start: 20000828
  2. LEUPROLIDE ACETATE [Suspect]
     Indication: PROSTATIC INTRAEPITHELIAL NEOPLASIA
     Dosage: (L) 7.5 MG IM OR (G) 3.6 MG SC Q28D X6 CYCLES OR (L) 22.5 MG IM OR (G) 10.8 MG SC Q84D X2 CYCLES
     Dates: start: 20000828

REACTIONS (3)
  - CEREBRAL ISCHAEMIA [None]
  - DYSPNOEA [None]
  - VENTRICULAR DYSFUNCTION [None]
